FAERS Safety Report 11174163 (Version 1)
Quarter: 2015Q2

REPORT INFORMATION
  Report Type: Spontaneous
  Country: SE (occurrence: None)
  Receive Date: 20150605
  Receipt Date: 20150605
  Transmission Date: 20150821
  Serious: Yes (Other)
  Sender: FDA-Public Use
  Company Number: SE2015074236

PATIENT
  Age: 55 Year
  Sex: Female

DRUGS (2)
  1. KALCIPOS-D FORTE (CALCIUM, COLECALCIFEROL) [Concomitant]
  2. TRIUMEQ [Suspect]
     Active Substance: ABACAVIR SULFATE\DOLUTEGRAVIR SODIUM\LAMIVUDINE
     Indication: HIV INFECTION
     Route: 048
     Dates: start: 201412, end: 201504

REACTIONS (3)
  - Depression [None]
  - Suicidal ideation [None]
  - Pain in jaw [None]

NARRATIVE: CASE EVENT DATE: 20141202
